FAERS Safety Report 7273270-2 (Version None)
Quarter: 2011Q1

REPORT INFORMATION
  Report Type: 
  Country: None (occurrence: None)
  Receive Date: 20110203
  Receipt Date: 20101221
  Transmission Date: 20110831
  Serious: No
  Sender: FDA-Public Use
  Company Number: US-ABBOTT-10P-163-0693757-00

PATIENT
  Sex: Female
  Weight: 90.8 kg

DRUGS (9)
  1. SYNTHROID [Suspect]
     Indication: THYROIDECTOMY
  2. UNKNOWN INHALER [Concomitant]
     Indication: ASTHMA
  3. SYNTHROID [Suspect]
  4. METFORMIN [Concomitant]
     Indication: HAEMORRHAGE
  5. VIT C [Concomitant]
     Indication: PRODUCT USED FOR UNKNOWN INDICATION
  6. IRON [Concomitant]
     Indication: PRODUCT USED FOR UNKNOWN INDICATION
  7. SYNTHROID [Suspect]
     Indication: THYROIDECTOMY
  8. VIT D [Concomitant]
     Indication: VITAMIN D DEFICIENCY
  9. CAL WITH D [Concomitant]
     Indication: PRODUCT USED FOR UNKNOWN INDICATION

REACTIONS (8)
  - VISUAL IMPAIRMENT [None]
  - HEADACHE [None]
  - PAIN IN EXTREMITY [None]
  - PALPITATIONS [None]
  - CONFUSIONAL STATE [None]
  - INSOMNIA [None]
  - MYALGIA [None]
  - DIZZINESS [None]
